FAERS Safety Report 6522150-6 (Version None)
Quarter: 2009Q4

REPORT INFORMATION
  Report Type: 
  Country: None (occurrence: None)
  Receive Date: 20091214
  Receipt Date: 20081023
  Transmission Date: 20100525
  Serious: Yes (Life-Threatening, Hospitalization)
  Sender: FDA-Public Use
  Company Number: 593296

PATIENT
  Age: 30 Year
  Sex: Female
  Weight: 93 kg

DRUGS (7)
  1. PEGASYS [Suspect]
     Indication: HEPATITIS C
     Dosage: 180 UG 1 PER WEEK SUBCUTANEOUS
     Route: 058
     Dates: start: 20070907, end: 20080303
  2. RIBAVIRIN [Suspect]
     Indication: HEPATITIS C
     Dosage: ORAL
     Route: 048
     Dates: start: 20070907, end: 20080303
  3. FLUOXETINE [Concomitant]
  4. SOMA [Concomitant]
  5. SEROQUEL [Concomitant]
  6. CLONAZEPAM [Concomitant]
  7. FIORICET [Concomitant]

REACTIONS (1)
  - SUICIDE ATTEMPT [None]
